FAERS Safety Report 5519262-2 (Version None)
Quarter: 2007Q4

REPORT INFORMATION
  Report Type: 
  Country: None (occurrence: None)
  Receive Date: 20071116
  Receipt Date: 20071106
  Transmission Date: 20080405
  Serious: Yes (Death, Hospitalization, Other)
  Sender: FDA-Public Use
  Company Number: US-AMGEN-US251346

PATIENT
  Sex: Female

DRUGS (6)
  1. ENBREL [Suspect]
     Indication: RHEUMATOID ARTHRITIS
     Route: 048
     Dates: start: 20021206, end: 20061025
  2. PREDNISONE TAB [Concomitant]
     Route: 048
  3. NIFEREX [Concomitant]
     Route: 065
  4. LOPRESSOR [Concomitant]
     Route: 048
  5. LIBRIUM [Concomitant]
     Route: 065
  6. MEGACE [Concomitant]
     Route: 065

REACTIONS (2)
  - DEEP VEIN THROMBOSIS [None]
  - STREPTOCOCCAL SEPSIS [None]
